FAERS Safety Report 12853012 (Version 1)
Quarter: 2016Q4

REPORT INFORMATION
  Report Type: Spontaneous
  Country: US (occurrence: US)
  Receive Date: 20161017
  Receipt Date: 20161017
  Transmission Date: 20170207
  Serious: No
  Sender: FDA-Public Use
  Company Number: US-JAZZ-2016-US-014035

PATIENT
  Sex: Female

DRUGS (9)
  1. NUVIGIL [Concomitant]
     Active Substance: ARMODAFINIL
  2. POTASSIUM CITRATE. [Concomitant]
     Active Substance: POTASSIUM CITRATE
  3. XYREM [Suspect]
     Active Substance: SODIUM OXYBATE
     Dosage: 4.5 G, BID
     Dates: start: 201606
  4. XYREM [Suspect]
     Active Substance: SODIUM OXYBATE
     Indication: NARCOLEPSY
     Dosage: 2.25 G, BID
     Route: 048
     Dates: start: 201605, end: 201606
  5. BIOTIN [Concomitant]
     Active Substance: BIOTIN
  6. PROBIOTIC [Concomitant]
     Active Substance: PROBIOTICS NOS
  7. LEXAPRO [Concomitant]
     Active Substance: ESCITALOPRAM OXALATE
  8. XYREM [Suspect]
     Active Substance: SODIUM OXYBATE
     Dosage: DOSE ADJUSTMENTS
     Route: 048
     Dates: start: 201606, end: 201606
  9. MULTIVITAMIN [Concomitant]
     Active Substance: VITAMINS

REACTIONS (4)
  - Euphoric mood [Unknown]
  - Stress [Unknown]
  - Energy increased [Unknown]
  - Migraine with aura [Not Recovered/Not Resolved]

NARRATIVE: CASE EVENT DATE: 2016
